FAERS Safety Report 8849227 (Version 1)
Quarter: 2012Q4

REPORT INFORMATION
  Report Type: Spontaneous
  Country: US (occurrence: None)
  Receive Date: 20121018
  Receipt Date: 20121018
  Transmission Date: 20130627
  Serious: Yes (Other)
  Sender: FDA-Public Use
  Company Number: None

PATIENT
  Age: 77 Year
  Sex: Male

DRUGS (1)
  1. PROCRIT [Suspect]
     Dates: start: 20120425, end: 20121009

REACTIONS (2)
  - Oedema peripheral [None]
  - Oedema peripheral [None]
